FAERS Safety Report 14620118 (Version 3)
Quarter: 2018Q4

REPORT INFORMATION
  Report Type: Report from Study
  Country: US (occurrence: US)
  Receive Date: 20180309
  Receipt Date: 20181024
  Transmission Date: 20190204
  Serious: Yes (Hospitalization)
  Sender: FDA-Public Use
  Company Number: US-GILEAD-2018-0325119

PATIENT
  Age: 39 Week
  Sex: Male
  Weight: 4.1 kg

DRUGS (4)
  1. RANOLAZINE. [Suspect]
     Active Substance: RANOLAZINE
     Indication: LONG QT SYNDROME CONGENITAL
     Dosage: 1000 MG, ONCE
     Route: 064
     Dates: start: 20170601, end: 20170601
  2. PLACEBO [Suspect]
     Active Substance: UNSPECIFIED INGREDIENT
     Indication: LONG QT SYNDROME CONGENITAL
     Dosage: UNK
     Route: 064
  3. GLYBURIDE. [Concomitant]
     Active Substance: GLYBURIDE
     Indication: GESTATIONAL DIABETES
     Dosage: 10 MG, QD
     Route: 064
  4. PRENATAL VITAMINS                  /02014401/ [Concomitant]
     Active Substance: VITAMINS
     Indication: SUPPLEMENTATION THERAPY
     Dosage: UNK
     Dates: start: 2017, end: 2018

REACTIONS (3)
  - Renal disorder [Unknown]
  - Cardiac murmur [Recovered/Resolved]
  - Foetal exposure during pregnancy [Recovered/Resolved]

NARRATIVE: CASE EVENT DATE: 20170601
